FAERS Safety Report 15235365 (Version 1)
Quarter: 2018Q3

REPORT INFORMATION
  Report Type: Spontaneous
  Country: US (occurrence: US)
  Receive Date: 20180709
  Receipt Date: 20180709
  Transmission Date: 20181010
  Serious: Yes (Hospitalization)
  Sender: FDA-Public Use
  Company Number: None

PATIENT
  Age: 59 Year
  Sex: Female
  Weight: 78.6 kg

DRUGS (8)
  1. MAG?OX [Concomitant]
     Active Substance: MAGNESIUM OXIDE
  2. GABAPENTIN. [Concomitant]
     Active Substance: GABAPENTIN
  3. AURANOFIN [Suspect]
     Active Substance: AURANOFIN
     Indication: OVARIAN CANCER
     Route: 048
     Dates: start: 20180606, end: 20180706
  4. SIROLIMUS. [Suspect]
     Active Substance: SIROLIMUS
     Indication: OVARIAN CANCER
     Route: 048
     Dates: start: 20180606, end: 20180706
  5. ATIVAN [Concomitant]
     Active Substance: LORAZEPAM
  6. XARELTO [Concomitant]
     Active Substance: RIVAROXABAN
  7. PERCOCET [Concomitant]
     Active Substance: ACETAMINOPHEN\OXYCODONE HYDROCHLORIDE
  8. GLYCOLAX [Concomitant]
     Active Substance: POLYETHYLENE GLYCOL 3350

REACTIONS (2)
  - Vomiting [None]
  - Nausea [None]

NARRATIVE: CASE EVENT DATE: 20180629
